FAERS Safety Report 15308141 (Version 3)
Quarter: 2018Q3

REPORT INFORMATION
  Report Type: Report from Study
  Country: US (occurrence: US)
  Receive Date: 20180822
  Receipt Date: 20180912
  Transmission Date: 20181010
  Serious: Yes (Hospitalization)
  Sender: FDA-Public Use
  Company Number: PHEH2018US034056

PATIENT
  Sex: Male

DRUGS (2)
  1. ENTRESTO [Suspect]
     Active Substance: SACUBITRIL\VALSARTAN
     Indication: CARDIAC FAILURE
     Dosage: UNK, BID
     Route: 048
  2. ENTRESTO [Suspect]
     Active Substance: SACUBITRIL\VALSARTAN
     Dosage: UNK, QD
     Route: 065

REACTIONS (9)
  - Contusion [Unknown]
  - Headache [Unknown]
  - Injury [Unknown]
  - Fall [Unknown]
  - Lethargy [Unknown]
  - Asthenia [Unknown]
  - Dyspnoea [Unknown]
  - Sluggishness [Unknown]
  - Wound [Unknown]
